FAERS Safety Report 19928182 (Version 1)
Quarter: 2021Q4

REPORT INFORMATION
  Report Type: Spontaneous
  Country: US (occurrence: US)
  Receive Date: 20211006
  Receipt Date: 20211006
  Transmission Date: 20220303
  Serious: Yes (Other)
  Sender: FDA-Public Use
  Company Number: None

PATIENT
  Age: 30 Year
  Sex: Male
  Weight: 163.4 kg

DRUGS (1)
  1. REMICADE [Suspect]
     Active Substance: INFLIXIMAB
     Indication: Crohn^s disease
     Dosage: ?          OTHER FREQUENCY:8 WEEKS;
     Route: 041
     Dates: start: 20211005, end: 20211005

REACTIONS (1)
  - Pruritus [None]

NARRATIVE: CASE EVENT DATE: 20211005
